FAERS Safety Report 9534309 (Version 1)
Quarter: 2013Q3

REPORT INFORMATION
  Report Type: Spontaneous
  Country: SI (occurrence: SI)
  Receive Date: 20130918
  Receipt Date: 20130918
  Transmission Date: 20140515
  Serious: Yes (Other)
  Sender: FDA-Public Use
  Company Number: SI-GLAXOSMITHKLINE-B0923267A

PATIENT
  Age: 52 Year
  Sex: Female

DRUGS (2)
  1. DULOXETINE [Suspect]
     Indication: PRODUCT USED FOR UNKNOWN INDICATION
     Dosage: 90MG PER DAY
     Route: 065
  2. BUPROPION [Suspect]
     Indication: PRODUCT USED FOR UNKNOWN INDICATION
     Dosage: 300MG PER DAY
     Route: 065

REACTIONS (5)
  - Long QT syndrome [Recovered/Resolved]
  - Loss of consciousness [Unknown]
  - Palpitations [Unknown]
  - Heart rate increased [Unknown]
  - Drug interaction [Unknown]
